FAERS Safety Report 25667654 (Version 2)
Quarter: 2025Q3

REPORT INFORMATION
  Report Type: Spontaneous
  Country: JP (occurrence: JP)
  Receive Date: 20250811
  Receipt Date: 20250902
  Transmission Date: 20251020
  Serious: Yes (Hospitalization)
  Sender: NOVO NORDISK
  Company Number: JP-NOVOPROD-1494637

PATIENT
  Age: 16 Year
  Sex: Male
  Weight: 54 kg

DRUGS (3)
  1. CONCIZUMAB [Suspect]
     Active Substance: CONCIZUMAB
     Indication: Factor IX deficiency
     Dosage: 10 MG, QD
     Route: 058
     Dates: start: 20250520
  2. CONCIZUMAB [Suspect]
     Active Substance: CONCIZUMAB
     Route: 058
     Dates: start: 20250802
  3. CONCIZUMAB [Suspect]
     Active Substance: CONCIZUMAB
     Route: 058
     Dates: start: 20250801

REACTIONS (4)
  - Road traffic accident [Unknown]
  - Contusion [Recovering/Resolving]
  - Wound [Recovering/Resolving]
  - Haemorrhage subcutaneous [Recovering/Resolving]

NARRATIVE: CASE EVENT DATE: 20250701
